FAERS Safety Report 9305966 (Version 1)
Quarter: 2013Q2

REPORT INFORMATION
  Report Type: Spontaneous
  Country: TW (occurrence: TW)
  Receive Date: 20130523
  Receipt Date: 20130523
  Transmission Date: 20140414
  Serious: Yes (Other)
  Sender: FDA-Public Use
  Company Number: TW-PFIZER INC-2013151575

PATIENT
  Age: 7 Decade
  Sex: Female

DRUGS (1)
  1. DOXABEN [Suspect]
     Indication: HYPERTENSION
     Dosage: 4 MG, EVERY OTHER DAY

REACTIONS (1)
  - Labile blood pressure [Unknown]
